FAERS Safety Report 6218503-6 (Version None)
Quarter: 2009Q2

REPORT INFORMATION
  Report Type: 
  Country: None (occurrence: None)
  Receive Date: 20090604
  Receipt Date: 20090604
  Transmission Date: 20091009
  Serious: Yes (Disabling)
  Sender: FDA-Public Use
  Company Number: None

PATIENT
  Age: 68 Year
  Sex: Female
  Weight: 81.6475 kg

DRUGS (1)
  1. LEVAQUIN [Suspect]
     Indication: SINUSITIS
     Dosage: 10     2 TIMES A DAY
     Dates: start: 20081222, end: 20081227

REACTIONS (4)
  - IMPAIRED WORK ABILITY [None]
  - TENDON RUPTURE [None]
  - TENDONITIS [None]
  - TREATMENT FAILURE [None]
